FAERS Safety Report 8933251 (Version 6)
Quarter: 2013Q2

REPORT INFORMATION
  Report Type: Spontaneous
  Country: US (occurrence: US)
  Receive Date: 20121129
  Receipt Date: 20130614
  Transmission Date: 20140414
  Serious: No
  Sender: FDA-Public Use
  Company Number: US-009507513-1211USA011376

PATIENT
  Age: 17 Year
  Sex: Female

DRUGS (1)
  1. NEXPLANON [Suspect]
     Indication: CONTRACEPTION
     Dosage: UNK
     Route: 059
     Dates: start: 20111014

REACTIONS (4)
  - Pain in extremity [Unknown]
  - Device deployment issue [Not Recovered/Not Resolved]
  - Device kink [Not Recovered/Not Resolved]
  - Incorrect drug administration duration [Unknown]
